FAERS Safety Report 4407538-1 (Version None)
Quarter: 2004Q3

REPORT INFORMATION
  Report Type: 
  Country: None (occurrence: None)
  Receive Date: 20040721
  Receipt Date: 20040720
  Transmission Date: 20050211
  Serious: Yes (Life-Threatening, Hospitalization)
  Sender: FDA-Public Use
  Company Number: HQWYE002112JUL04

PATIENT
  Age: 72 Year
  Sex: Female

DRUGS (6)
  1. ETODOLAC [Suspect]
     Indication: UPPER RESPIRATORY TRACT INFLAMMATION
     Dosage: 400 MG 2X PER 1 DAY ORAL
     Route: 048
     Dates: start: 20040412, end: 20040419
  2. THEOPHYLLINE [Suspect]
     Indication: UPPER RESPIRATORY TRACT INFLAMMATION
     Dosage: 200 MG 2X PER 1 DAY ORAL
     Route: 048
     Dates: start: 20040510, end: 20040514
  3. ZALTOPROFEN (ZALTOPROFEN, ) [Suspect]
     Indication: UPPER RESPIRATORY TRACT INFLAMMATION
     Dosage: 200 MG 2X PER 1 DAY ORAL
     Route: 048
     Dates: start: 20040510, end: 20040514
  4. BENIDIPINE HYDROCHLORIDE (BENIDIPINE HYDROCHLORIDE) [Concomitant]
  5. URSODEOXYCHOLIC ACID (URSODEOXYCHOLIC ACID) [Concomitant]
  6. SHOUSAIKOTOU (HERBAL EXTRACTS NOS) [Concomitant]

REACTIONS (5)
  - BONE MARROW DEPRESSION [None]
  - HAEMORRHAGE [None]
  - HAEMORRHAGE SUBCUTANEOUS [None]
  - IMMUNE SYSTEM DISORDER [None]
  - UPPER RESPIRATORY TRACT INFLAMMATION [None]
